FAERS Safety Report 18054000 (Version 8)
Quarter: 2024Q3

REPORT INFORMATION
  Report Type: Spontaneous
  Country: US (occurrence: US)
  Receive Date: 20200722
  Receipt Date: 20240925
  Transmission Date: 20241016
  Serious: Yes (Other)
  Sender: PFIZER
  Company Number: US-PFIZER INC-2020278861

PATIENT
  Age: 71 Year
  Sex: Female

DRUGS (2)
  1. XELJANZ XR [Suspect]
     Active Substance: TOFACITINIB CITRATE
     Indication: Rheumatoid arthritis
     Dosage: 11 MG, 1X/DAY
     Route: 048
     Dates: start: 20200620, end: 2020
  2. XELJANZ XR [Suspect]
     Active Substance: TOFACITINIB CITRATE
     Dosage: 11 MG
     Dates: start: 20210109, end: 20220202

REACTIONS (5)
  - Arthropathy [Unknown]
  - Diarrhoea [Unknown]
  - Headache [Unknown]
  - Pain [Unknown]
  - Tearfulness [Unknown]

NARRATIVE: CASE EVENT DATE: 20200101
